FAERS Safety Report 4815157-8 (Version None)
Quarter: 2005Q4

REPORT INFORMATION
  Report Type: 
  Country: None (occurrence: None)
  Receive Date: 20051027
  Receipt Date: 20051013
  Transmission Date: 20060501
  Serious: Yes (Other)
  Sender: FDA-Public Use
  Company Number: 2005141559

PATIENT
  Sex: Female

DRUGS (1)
  1. COOL MINT LISTERINE (MENTHOL, METHYL SALICYLATE, EUCALYPTOL, THYMOL) [Suspect]
     Indication: INTENTIONAL OVERDOSE
     Dosage: ONE BOTTLE ONCE, ORAL
     Route: 048
     Dates: start: 20051013, end: 20051013

REACTIONS (2)
  - DIARRHOEA [None]
  - INTENTIONAL DRUG MISUSE [None]
